FAERS Safety Report 6245051-X (Version None)
Quarter: 2009Q2

REPORT INFORMATION
  Report Type: 
  Country: None (occurrence: None)
  Receive Date: 20090625
  Receipt Date: 20090615
  Transmission Date: 20091009
  Serious: Yes (Other)
  Sender: FDA-Public Use
  Company Number: US-ELI_LILLY_AND_COMPANY-US200710005939

PATIENT
  Sex: Male
  Weight: 116.55 kg

DRUGS (5)
  1. ZYPREXA [Suspect]
     Dosage: UNK, UNK
     Dates: start: 19990101, end: 20000101
  2. ZYPREXA [Suspect]
     Dates: start: 20050101
  3. RISPERDAL [Concomitant]
     Dates: start: 19960101, end: 19990101
  4. GEODON [Concomitant]
     Dates: start: 20080101, end: 20090101
  5. TRILAFON [Concomitant]
     Dates: start: 20090101

REACTIONS (8)
  - BLOOD CHOLESTEROL ABNORMAL [None]
  - BLOOD TRIGLYCERIDES INCREASED [None]
  - DIABETIC KETOACIDOSIS [None]
  - HYPERGLYCAEMIA [None]
  - OBESITY [None]
  - PANCREATITIS [None]
  - TYPE 2 DIABETES MELLITUS [None]
  - WEIGHT INCREASED [None]
